FAERS Safety Report 12634429 (Version 2)
Quarter: 2016Q3

REPORT INFORMATION
  Report Type: Report from Study
  Country: CO (occurrence: CO)
  Receive Date: 20160809
  Receipt Date: 20160908
  Transmission Date: 20161109
  Serious: Yes (Other)
  Sender: FDA-Public Use
  Company Number: CO-SA-2016SA144960

PATIENT
  Age: 23 Year
  Sex: Female
  Weight: 46 kg

DRUGS (1)
  1. LEMTRADA [Suspect]
     Active Substance: ALEMTUZUMAB
     Indication: MULTIPLE SCLEROSIS
     Route: 041
     Dates: start: 20160404, end: 20160408

REACTIONS (4)
  - Bacterial test [Unknown]
  - Leukopenia [Not Recovered/Not Resolved]
  - Monocyte percentage increased [Unknown]
  - Urinary sediment present [Unknown]

NARRATIVE: CASE EVENT DATE: 2016
